FAERS Safety Report 6956774-9 (Version None)
Quarter: 2010Q3

REPORT INFORMATION
  Report Type: 
  Country: None (occurrence: None)
  Receive Date: 20100830
  Receipt Date: 20100802
  Transmission Date: 20110219
  Serious: Yes (Hospitalization, Other)
  Sender: FDA-Public Use
  Company Number: PHHY2010US51460

PATIENT
  Sex: Female
  Weight: 92.52 kg

DRUGS (50)
  1. AREDIA [Suspect]
     Dosage: 90MG EVERY MONTH
     Route: 042
     Dates: start: 19980627
  2. BEXTRA [Concomitant]
  3. LORTAB [Concomitant]
  4. AMBIEN [Concomitant]
  5. PRILOSEC [Concomitant]
  6. MIRALAX [Concomitant]
  7. MS CONTIN [Concomitant]
  8. CHROMAGEN [Concomitant]
  9. PROCRIT                            /00909301/ [Concomitant]
  10. DECADRON [Concomitant]
  11. LIPITOR [Concomitant]
  12. DURAGESIC-100 [Concomitant]
  13. LEVAQUIN [Concomitant]
  14. COMPAZINE [Concomitant]
  15. PEPCID [Concomitant]
  16. K-DUR [Concomitant]
  17. XANAX [Concomitant]
  18. TYLENOL-500 [Concomitant]
  19. SEPTRA DS [Concomitant]
  20. CIPRO [Concomitant]
  21. INTERFERON [Concomitant]
  22. FLAGYL [Concomitant]
  23. PROZAC [Concomitant]
  24. LOMOTIL [Concomitant]
  25. BENADRYL ^ACHE^ [Concomitant]
  26. MORPHINE [Concomitant]
  27. ESTRACE [Concomitant]
  28. NYSTATIN [Concomitant]
  29. MAGNESIUM SULFATE [Concomitant]
  30. CHLORHEXIDINE GLUCONATE [Concomitant]
  31. ZOVIRAX [Concomitant]
  32. ZYLOPRIM [Concomitant]
  33. PHENERGAN ^AVENTIS PHARMA^ [Concomitant]
  34. SODIUM CHLORIDE [Concomitant]
  35. PERCOCET [Concomitant]
  36. PERIDEX [Concomitant]
  37. ALLOPURINOL [Concomitant]
  38. ACYCLOVIR SODIUM [Concomitant]
  39. ACETAMINOPHEN [Concomitant]
  40. PROMETHAZINE [Concomitant]
  41. ALKERAN [Concomitant]
  42. DIPHENHYDRAMINE HCL [Concomitant]
  43. DOCUSATE [Concomitant]
  44. PENTAZOCINE [Concomitant]
  45. ATROPIN [Concomitant]
  46. DICYCLOMINE [Concomitant]
  47. NEUPOGEN [Concomitant]
  48. VINCRISTINE [Concomitant]
     Dosage: UNK
     Dates: start: 19980601, end: 19981001
  49. ADRIAMYCIN PFS [Concomitant]
     Dosage: UNK
     Dates: start: 19980601, end: 19981001
  50. PREDNISONE [Concomitant]

REACTIONS (21)
  - ABDOMINAL PAIN [None]
  - ATELECTASIS [None]
  - AUTOLOGOUS BONE MARROW TRANSPLANTATION THERAPY [None]
  - BLOOD CALCIUM DECREASED [None]
  - BLOOD POTASSIUM DECREASED [None]
  - DIARRHOEA [None]
  - DYSGRAPHIA [None]
  - FAECES DISCOLOURED [None]
  - FATIGUE [None]
  - HYPOPHAGIA [None]
  - MULTIPLE MYELOMA [None]
  - ORAL PAIN [None]
  - OSTEOPENIA [None]
  - PAIN [None]
  - PARAESTHESIA [None]
  - PLATELET COUNT DECREASED [None]
  - POSTOPERATIVE FEVER [None]
  - PULMONARY FIBROSIS [None]
  - PULMONARY OEDEMA [None]
  - SINUS TACHYCARDIA [None]
  - STEM CELL TRANSPLANT [None]
